FAERS Safety Report 8186240-7 (Version None)
Quarter: 2012Q1

REPORT INFORMATION
  Report Type: 
  Country: None (occurrence: None)
  Receive Date: 20120306
  Receipt Date: 20120229
  Transmission Date: 20120608
  Serious: No
  Sender: FDA-Public Use
  Company Number: US-PFIZER INC-2012056720

PATIENT
  Sex: Male
  Weight: 100 kg

DRUGS (1)
  1. VIAGRA [Suspect]
     Indication: PERIPHERAL VASCULAR DISORDER
     Dosage: UNK

REACTIONS (1)
  - VEIN DISORDER [None]
